FAERS Safety Report 23122440 (Version 10)
Quarter: 2024Q3

REPORT INFORMATION
  Report Type: Spontaneous
  Country: US (occurrence: US)
  Receive Date: 20231030
  Receipt Date: 20240723
  Transmission Date: 20241016
  Serious: Yes (Other)
  Sender: SANOFI AVENTIS
  Company Number: US-SA-SAC20231026001388

PATIENT
  Age: 54 Year
  Sex: Female

DRUGS (3)
  1. DUPIXENT [Suspect]
     Active Substance: DUPILUMAB
     Indication: Eczema
     Dosage: 600 MG, 1X
     Route: 058
     Dates: start: 20230927, end: 20230927
  2. DUPIXENT [Suspect]
     Active Substance: DUPILUMAB
     Indication: Dermatitis atopic
     Dosage: 300 MG, QOW
     Route: 058
     Dates: start: 202310, end: 202405
  3. HUMIRA [Suspect]
     Active Substance: ADALIMUMAB
     Dosage: UNK
     Dates: start: 202311

REACTIONS (14)
  - Ankylosing spondylitis [Unknown]
  - Stress [Unknown]
  - Injury [Unknown]
  - Arthritis [Unknown]
  - Arthralgia [Unknown]
  - Sinusitis [Recovered/Resolved]
  - Sinus headache [Unknown]
  - Eczema [Unknown]
  - Injection site pain [Unknown]
  - Dry eye [Unknown]
  - Hypersensitivity [Unknown]
  - Product dose omission in error [Unknown]
  - Accidental exposure to product [Unknown]
  - Exposure via skin contact [Unknown]

NARRATIVE: CASE EVENT DATE: 20230101
